FAERS Safety Report 24403502 (Version 1)
Quarter: 2024Q4

REPORT INFORMATION
  Report Type: Spontaneous
  Country: CN (occurrence: CN)
  Receive Date: 20241007
  Receipt Date: 20241007
  Transmission Date: 20250115
  Serious: Yes (Other)
  Sender: REGENERON
  Company Number: CN-SA-2024SA283291

PATIENT
  Age: 60 Year
  Sex: Female

DRUGS (4)
  1. PRALUENT [Suspect]
     Active Substance: ALIROCUMAB
     Indication: Type IIb hyperlipidaemia
     Dosage: 75 MG, QOW
     Route: 058
     Dates: start: 20240827, end: 20240924
  2. PRALUENT [Suspect]
     Active Substance: ALIROCUMAB
     Indication: Hypothyroidism
  3. PRALUENT [Suspect]
     Active Substance: ALIROCUMAB
     Indication: Arteriosclerosis coronary artery
  4. OMEPRAZOLE [Suspect]
     Active Substance: OMEPRAZOLE
     Indication: Gastrointestinal disorder
     Dosage: 10 MG, QD (EVERY DAY)
     Route: 048
     Dates: start: 20240901, end: 20240924

REACTIONS (1)
  - Renal impairment [Unknown]

NARRATIVE: CASE EVENT DATE: 20240924
